FAERS Safety Report 21663537 (Version 1)
Quarter: 2022Q4

REPORT INFORMATION
  Report Type: Report from Study
  Country: US (occurrence: US)
  Receive Date: 20221130
  Receipt Date: 20221130
  Transmission Date: 20230112
  Serious: No
  Sender: FDA-Public Use
  Company Number: US-ABBVIE-4163163

PATIENT
  Age: 53 Year
  Sex: Female

DRUGS (3)
  1. HUMIRA [Suspect]
     Active Substance: ADALIMUMAB
     Indication: Ankylosing spondylitis
     Dosage: CITRATE FREE?FORM STRENGTH: 40 MG
     Route: 058
  2. Janssen COVID19 vaccine [Concomitant]
     Indication: COVID-19 immunisation
     Dosage: FIRST DOSE?ONE IN ONCE
     Route: 030
  3. Janssen COVID19 vaccine [Concomitant]
     Indication: COVID-19 immunisation
     Dosage: BOOSTER DOSE?ONE IN ONCE
     Route: 030

REACTIONS (8)
  - Speech disorder [Unknown]
  - COVID-19 [Recovered/Resolved]
  - Tongue ulceration [Unknown]
  - Dry mouth [Unknown]
  - Thirst [Unknown]
  - Sinus congestion [Unknown]
  - COVID-19 [Unknown]
  - Unevaluable event [Unknown]

NARRATIVE: CASE EVENT DATE: 20201101
